FAERS Safety Report 9746244 (Version 6)
Quarter: 2020Q2

REPORT INFORMATION
  Report Type: Spontaneous
  Country: US (occurrence: US)
  Receive Date: 20131211
  Receipt Date: 20200512
  Transmission Date: 20200714
  Serious: Yes (Death, Hospitalization)
  Sender: FDA-Public Use
  Company Number: US-PFIZER INC-2013349744

PATIENT
  Age: 72 Year
  Sex: Male
  Weight: 83.91 kg

DRUGS (2)
  1. REVATIO [Suspect]
     Active Substance: SILDENAFIL CITRATE
     Indication: PULMONARY ARTERIAL HYPERTENSION
     Dosage: 40 MG(2 TABLETS 20 MG) , 3X/DAY
     Dates: start: 20110404
  2. REVATIO [Suspect]
     Active Substance: SILDENAFIL CITRATE
     Dosage: 80 MG, 3X/DAY [TAKE 4 TABLET 3 TIMES DAILY]
     Route: 048

REACTIONS (3)
  - Prescribed overdose [Unknown]
  - Death [Fatal]
  - Malaise [Unknown]
